FAERS Safety Report 7485086-2 (Version None)
Quarter: 2011Q2

REPORT INFORMATION
  Report Type: 
  Country: None (occurrence: None)
  Receive Date: 20110517
  Receipt Date: 20101112
  Transmission Date: 20111010
  Serious: No
  Sender: FDA-Public Use
  Company Number: US-BAYER-2010-005163

PATIENT
  Age: 70 Year
  Sex: Male
  Weight: 85 kg

DRUGS (5)
  1. LEVODOPA [Concomitant]
  2. LIPITOR [Concomitant]
  3. VITAMIN D [Concomitant]
  4. ASPIRIN [Suspect]
     Dosage: DAILY DOSE 81 MG
  5. ALEVE (CAPLET) [Suspect]
     Indication: BACK PAIN

REACTIONS (1)
  - BACK PAIN [None]
